FAERS Safety Report 9167446 (Version 1)
Quarter: 2013Q1

REPORT INFORMATION
  Report Type: Spontaneous
  Country: US (occurrence: None)
  Receive Date: 20130301
  Receipt Date: 20130301
  Transmission Date: 20140127
  Serious: Yes (Hospitalization)
  Sender: FDA-Public Use
  Company Number: 1616155

PATIENT
  Age: 7 Year
  Sex: Male

DRUGS (3)
  1. CYTARABINE [Suspect]
     Indication: BURKITT^S LYMPHOMA
  2. ETOPOSIDE [Suspect]
     Indication: BURKITT^S LYMPHOMA
  3. RITUXIMAB [Suspect]
     Indication: BURKITT^S LYMPHOMA

REACTIONS (6)
  - Caecitis [None]
  - Intussusception [None]
  - Septic shock [None]
  - Appendicitis perforated [None]
  - Clostridium test positive [None]
  - Clostridium test positive [None]
